FAERS Safety Report 21386395 (Version 1)
Quarter: 2022Q3

REPORT INFORMATION
  Report Type: Spontaneous
  Country: US (occurrence: US)
  Receive Date: 20220928
  Receipt Date: 20220928
  Transmission Date: 20221026
  Serious: Yes (Hospitalization, Other)
  Sender: FDA-Public Use
  Company Number: US-SANOFI-01292438

PATIENT
  Age: 58 Year
  Sex: Male

DRUGS (1)
  1. LANTUS [Suspect]
     Active Substance: INSULIN GLARGINE
     Dosage: 25 U

REACTIONS (4)
  - Ketoacidosis [Unknown]
  - Eating disorder [Unknown]
  - Vomiting [Unknown]
  - Intentional product misuse [Unknown]
